FAERS Safety Report 17086550 (Version 2)
Quarter: 2020Q2

REPORT INFORMATION
  Report Type: Spontaneous
  Country: US (occurrence: US)
  Receive Date: 20191128
  Receipt Date: 20200526
  Transmission Date: 20200713
  Serious: No
  Sender: FDA-Public Use
  Company Number: US-UCBSA-2018043124

PATIENT
  Age: 55 Year
  Sex: Female
  Weight: 78 kg

DRUGS (1)
  1. CIMZIA [Suspect]
     Active Substance: CERTOLIZUMAB PEGOL
     Indication: RHEUMATOID ARTHRITIS
     Dosage: 200 MG, EV 2 WEEKS(QOW)
     Route: 058
     Dates: start: 20180828

REACTIONS (8)
  - Gingival pain [Unknown]
  - Diarrhoea [Unknown]
  - Arthralgia [Unknown]
  - Flatulence [Unknown]
  - Product dose omission [Unknown]
  - Nausea [Unknown]
  - Respiratory tract congestion [Unknown]
  - Pain [Unknown]

NARRATIVE: CASE EVENT DATE: 2018
